FAERS Safety Report 7698761-1 (Version None)
Quarter: 2011Q3

REPORT INFORMATION
  Report Type: 
  Country: None (occurrence: None)
  Receive Date: 20110819
  Receipt Date: 20110805
  Transmission Date: 20111222
  Serious: Yes (Hospitalization)
  Sender: FDA-Public Use
  Company Number: AT-GLAXOSMITHKLINE-B0738025C

PATIENT
  Sex: Male
  Weight: 66 kg

DRUGS (5)
  1. OFATUMUMAB [Suspect]
     Indication: MALIGNANT MELANOMA
     Dosage: 1000MG PER DAY
     Route: 042
     Dates: start: 20110726
  2. INDAPAMIDE [Concomitant]
     Indication: HYPERTENSION
     Dosage: 1.5MG PER DAY
     Route: 048
     Dates: start: 20110728, end: 20110808
  3. LISINOPRIL [Concomitant]
     Indication: HYPERTENSION
     Dosage: 20MG TWICE PER DAY
     Route: 048
     Dates: start: 20110728, end: 20110730
  4. BAYPRESS [Concomitant]
     Indication: HYPERTENSION
     Dosage: 20MG THREE TIMES PER DAY
     Route: 048
     Dates: start: 20110728, end: 20110808
  5. CARVEDILOL [Concomitant]
     Indication: HYPERTENSION
     Route: 048
     Dates: start: 20110728, end: 20110808

REACTIONS (1)
  - HYPERTENSION [None]
